FAERS Safety Report 5749873-0 (Version None)
Quarter: 2008Q2

REPORT INFORMATION
  Report Type: 
  Country: None (occurrence: None)
  Receive Date: 20080527
  Receipt Date: 20080516
  Transmission Date: 20081010
  Serious: Yes (Hospitalization)
  Sender: FDA-Public Use
  Company Number: US-CVT-080039

PATIENT

DRUGS (16)
  1. RANEXA [Suspect]
     Indication: ANGINA PECTORIS
     Dosage: 500 MG, BID
     Route: 048
  2. RANEXA [Suspect]
     Dosage: 1000 MG, BID
     Route: 048
  3. ACETAMINOPHEN AND HYDROCODONE BITARTRATE [Concomitant]
  4. BUMEX [Concomitant]
  5. CALCIUM CARBONATE [Concomitant]
  6. PROZAC [Concomitant]
  7. NEURONTIN [Concomitant]
  8. FLOMAX /01280302/ [Concomitant]
  9. METOPROLOL                         /00376901/ [Concomitant]
  10. INSULIN /00030501/ [Concomitant]
  11. PANTOPRAZOLE SODIUM [Concomitant]
  12. IMDUR [Concomitant]
  13. PREDNISONE                         /00044701/ [Concomitant]
  14. SPIRONOLACTONE [Concomitant]
  15. METOLAZONE [Concomitant]
  16. LEVOFLOXACIN [Concomitant]

REACTIONS (3)
  - CHEST PAIN [None]
  - HALLUCINATION [None]
  - VISUAL DISTURBANCE [None]
